FAERS Safety Report 4560378-5 (Version None)
Quarter: 2005Q1

REPORT INFORMATION
  Report Type: 
  Country: None (occurrence: None)
  Receive Date: 20050125
  Receipt Date: 20050113
  Transmission Date: 20050727
  Serious: Yes (Hospitalization)
  Sender: FDA-Public Use
  Company Number: US-JNJFOC-20040902429

PATIENT
  Age: 75 Year
  Sex: Male

DRUGS (3)
  1. TYLENOL (CAPLET) [Suspect]
  2. TYLENOL (CAPLET) [Suspect]
     Indication: ABDOMINAL PAIN
  3. UNSPECIFIED MEDICATION [Concomitant]

REACTIONS (6)
  - BLADDER CANCER [None]
  - CHOLELITHIASIS [None]
  - DRUG INEFFECTIVE [None]
  - HEPATITIS [None]
  - THROMBOSIS [None]
  - VOMITING [None]
